FAERS Safety Report 7345332 (Version 11)
Quarter: 2013Q4

REPORT INFORMATION
  Report Type: Spontaneous
  Country: FR (occurrence: FR)
  Receive Date: 20100406
  Receipt Date: 20131105
  Transmission Date: 20140711
  Serious: Yes (Life-Threatening, Hospitalization, Other)
  Sender: FDA-Public Use
  Company Number: PHHY2010FR20246

PATIENT
  Age: 75 Year
  Sex: Female

DRUGS (26)
  1. EXJADE [Suspect]
     Indication: SIDEROBLASTIC ANAEMIA
     Dosage: 1000 MG DAILY OR 2 DF/DAY
     Route: 048
     Dates: start: 20100316, end: 20100325
  2. EXJADE [Suspect]
     Indication: SERUM FERRITIN INCREASED
  3. EXJADE [Suspect]
     Indication: IRON OVERLOAD
  4. NEORECORMON [Suspect]
  5. BETAHISTINE [Suspect]
     Dosage: 8 MG, QD
     Route: 048
     Dates: end: 20100327
  6. EFFERALGAN [Suspect]
     Dosage: 1 G, PRN
     Route: 048
     Dates: end: 20100327
  7. AERIUS [Suspect]
     Dosage: 5 MG, QD
     Route: 048
     Dates: end: 20100327
  8. FLUIDABAK [Suspect]
     Dosage: 1.5 % (OPH), UNK
     Route: 047
     Dates: start: 20091218, end: 20100327
  9. CROMABAK [Suspect]
     Route: 047
     Dates: start: 20091218, end: 20100327
  10. VITAMIN K [Concomitant]
  11. OXYGEN THERAPY/HYPERBARIC OXYGEN THERAPY [Concomitant]
  12. PROTON PUMP INHIBITORS [Concomitant]
     Dosage: 200 MG DAILY
  13. CATHETERIZATION [Concomitant]
  14. TAZOBACTAM [Concomitant]
  15. PIPERACILLIN [Concomitant]
  16. CIPROFLOXACIN [Concomitant]
  17. AMOXICILLIN [Concomitant]
  18. CLARITHROMYCIN [Concomitant]
     Dosage: 500 MG, UNK
  19. NEXIUM [Concomitant]
     Dosage: 40 MG, UNK
  20. PARACETAMOL [Concomitant]
  21. FLAMMAZINE [Concomitant]
  22. MACROGOL [Concomitant]
  23. TETRAZEPAM [Concomitant]
  24. CHONDROSULF [Concomitant]
  25. DIALGIREX [Concomitant]
  26. SPECIAFOLDINE [Concomitant]

REACTIONS (86)
  - Cardiac arrest [Recovered/Resolved with Sequelae]
  - Hypotension [Recovered/Resolved with Sequelae]
  - Cardiac murmur [Unknown]
  - Crepitations [Unknown]
  - Hypocalcaemia [Unknown]
  - Blood creatine phosphokinase increased [Recovered/Resolved with Sequelae]
  - Shock [Recovered/Resolved with Sequelae]
  - Drug reaction with eosinophilia and systemic symptoms [Recovered/Resolved with Sequelae]
  - Rash maculo-papular [Recovered/Resolved with Sequelae]
  - Rash [Unknown]
  - Lymphocyte morphology abnormal [Unknown]
  - Lichenoid keratosis [Unknown]
  - Pruritus [Unknown]
  - Multi-organ failure [Recovered/Resolved with Sequelae]
  - Confusional state [Recovered/Resolved with Sequelae]
  - Brain injury [Unknown]
  - Leukocytosis [Unknown]
  - Lymphocytic infiltration [Unknown]
  - Eyelid oedema [Recovered/Resolved with Sequelae]
  - Face oedema [Recovered/Resolved with Sequelae]
  - Coma [Unknown]
  - Hepatocellular injury [Recovered/Resolved with Sequelae]
  - Tongue oedema [Recovered/Resolved with Sequelae]
  - Oedema genital [Unknown]
  - Pyrexia [Recovered/Resolved with Sequelae]
  - Septic shock [Recovered/Resolved with Sequelae]
  - Disseminated intravascular coagulation [Recovered/Resolved with Sequelae]
  - Fibrinolysis [Unknown]
  - Thrombocytopenia [Unknown]
  - Haemodynamic instability [Recovered/Resolved with Sequelae]
  - Cyanosis [Recovered/Resolved with Sequelae]
  - Hypoxia [Recovered/Resolved with Sequelae]
  - Bradycardia [Recovered/Resolved with Sequelae]
  - Rhabdomyolysis [Recovered/Resolved with Sequelae]
  - Skin lesion [Unknown]
  - Cell death [Recovered/Resolved with Sequelae]
  - Hypovolaemia [Recovered/Resolved with Sequelae]
  - Hyperkinesia [Recovered/Resolved with Sequelae]
  - Respiratory failure [Recovered/Resolved with Sequelae]
  - Purpura [Recovered/Resolved with Sequelae]
  - Thrombosis [Recovered/Resolved with Sequelae]
  - Toxic skin eruption [Recovered/Resolved with Sequelae]
  - Renal impairment [Recovered/Resolved with Sequelae]
  - Lung disorder [Recovered/Resolved]
  - Anuria [Recovered/Resolved with Sequelae]
  - Skin necrosis [Recovered/Resolved with Sequelae]
  - Neurological decompensation [Recovered/Resolved with Sequelae]
  - Anaemia [Recovered/Resolved with Sequelae]
  - Ulcer haemorrhage [Recovered/Resolved with Sequelae]
  - Cognitive disorder [Recovered/Resolved with Sequelae]
  - Angioedema [Unknown]
  - Tachycardia [Unknown]
  - Hepatocellular injury [Recovered/Resolved]
  - Arrhythmia [Unknown]
  - Cardiac fibrillation [Unknown]
  - Sepsis [Recovered/Resolved]
  - Tracheal injury [Recovering/Resolving]
  - Pleural effusion [Unknown]
  - Gastric ulcer [Unknown]
  - Helicobacter infection [Recovered/Resolved]
  - Aspartate aminotransferase increased [Recovered/Resolved with Sequelae]
  - Alanine aminotransferase increased [Recovered/Resolved with Sequelae]
  - Gastrointestinal disorder [Recovered/Resolved with Sequelae]
  - Abdominal pain [Unknown]
  - Vomiting [Recovered/Resolved]
  - Diarrhoea [Recovered/Resolved with Sequelae]
  - Hyperventilation [Recovered/Resolved with Sequelae]
  - Burns third degree [Unknown]
  - Metabolic acidosis [Recovered/Resolved with Sequelae]
  - Apallic syndrome [Unknown]
  - Allodynia [Unknown]
  - Hepatic enzyme increased [Unknown]
  - Prothrombin time shortened [Unknown]
  - Serum ferritin increased [Unknown]
  - Knee deformity [Unknown]
  - General physical health deterioration [Unknown]
  - Cerebral ischaemia [Unknown]
  - Oxygen saturation abnormal [Unknown]
  - Inflammation [Recovered/Resolved]
  - Dry mouth [Recovered/Resolved with Sequelae]
  - Keratitis [Recovered/Resolved]
  - Sinusitis [Unknown]
  - Joint stiffness [Not Recovered/Not Resolved]
  - Foot deformity [Unknown]
  - Abdominal bruit [Unknown]
  - Body temperature increased [Unknown]
